FAERS Safety Report 7134767-9 (Version None)
Quarter: 2010Q4

REPORT INFORMATION
  Report Type: 
  Country: None (occurrence: None)
  Receive Date: 20101203
  Receipt Date: 20101123
  Transmission Date: 20110411
  Serious: Yes (Death, Hospitalization)
  Sender: FDA-Public Use
  Company Number: DE-ROCHE-737071

PATIENT
  Sex: Female
  Weight: 76 kg

DRUGS (16)
  1. TOCILIZUMAB [Suspect]
     Dosage: 560 MG ALSO GIVEN ON 19 AUG 2010 AND 09 SEP 2010
     Route: 042
     Dates: start: 20100721, end: 20101010
  2. PREDNISOLONE [Suspect]
     Route: 048
  3. METHOTREXAT [Concomitant]
  4. METOHEXAL [Concomitant]
  5. RAMIPRIL [Concomitant]
  6. HCT [Concomitant]
  7. TORASEMID [Concomitant]
  8. APROVEL [Concomitant]
  9. ASPIRIN [Concomitant]
  10. JODID 200 [Concomitant]
  11. CALCIUM/VITAMIN D3 [Concomitant]
  12. NOVORAPID [Concomitant]
  13. LEVEMIR [Concomitant]
  14. FOLIC ACID [Concomitant]
  15. NON-STEROIDAL ANTI-INFLAMMATORIES [Concomitant]
     Dates: end: 20101011
  16. PANTOPRAZOLE SODIUM [Concomitant]

REACTIONS (7)
  - ACUTE RESPIRATORY DISTRESS SYNDROME [None]
  - ALVEOLITIS [None]
  - MULTI-ORGAN FAILURE [None]
  - PNEUMOCYSTIS JIROVECI PNEUMONIA [None]
  - PULMONARY CONGESTION [None]
  - RESPIRATORY FAILURE [None]
  - SEPSIS [None]
